FAERS Safety Report 24058387 (Version 3)
Quarter: 2024Q3

REPORT INFORMATION
  Report Type: Spontaneous
  Country: JP (occurrence: JP)
  Receive Date: 20240708
  Receipt Date: 20240810
  Transmission Date: 20241017
  Serious: Yes (Other)
  Sender: MERCK
  Company Number: JP-MSD-M2024-26131

PATIENT
  Age: 75 Year
  Sex: Male

DRUGS (1)
  1. KEYTRUDA [Suspect]
     Active Substance: PEMBROLIZUMAB
     Indication: Transitional cell carcinoma recurrent
     Dosage: 200 MILLIGRAM, Q3W
     Route: 041
     Dates: start: 20230323, end: 20231024

REACTIONS (1)
  - Immune-mediated renal disorder [Recovered/Resolved]

NARRATIVE: CASE EVENT DATE: 20240306
